FAERS Safety Report 9394373 (Version 3)
Quarter: 2013Q3

REPORT INFORMATION
  Report Type: Spontaneous
  Country: JP (occurrence: JP)
  Receive Date: 20130711
  Receipt Date: 20130828
  Transmission Date: 20140515
  Serious: Yes (Life-Threatening, Hospitalization, Other)
  Sender: FDA-Public Use
  Company Number: JP-ROCHE-1246402

PATIENT
  Age: 44 Year
  Sex: Male
  Weight: 57 kg

DRUGS (10)
  1. CELLCEPT [Suspect]
     Indication: PROPHYLAXIS AGAINST TRANSPLANT REJECTION
     Route: 048
     Dates: start: 20031013
  2. CELLCEPT [Suspect]
     Indication: PROPHYLAXIS AGAINST TRANSPLANT REJECTION
     Route: 048
     Dates: end: 20120701
  3. TACROLIMUS HYDRATE [Concomitant]
     Indication: PROPHYLAXIS AGAINST TRANSPLANT REJECTION
     Route: 048
     Dates: start: 2003, end: 20120711
  4. CICLOSPORIN [Concomitant]
     Indication: PROPHYLAXIS AGAINST TRANSPLANT REJECTION
     Route: 041
     Dates: start: 20120711, end: 20120718
  5. NEORAL [Concomitant]
     Indication: PROPHYLAXIS AGAINST TRANSPLANT REJECTION
     Route: 048
     Dates: start: 20120718
  6. PREDNISOLONE [Concomitant]
     Indication: PROPHYLAXIS AGAINST TRANSPLANT REJECTION
     Dosage: DOSAGE IS UNCERTAIN.
     Route: 065
     Dates: start: 2003
  7. BASEN (JAPAN) [Concomitant]
     Indication: DIABETES MELLITUS
     Route: 048
  8. NORVASC [Concomitant]
     Indication: HYPERTENSION
     Route: 048
  9. HERBESSER R [Concomitant]
     Indication: ARRHYTHMIA
     Route: 048
  10. PROMAC (JAPAN) [Concomitant]
     Indication: GASTRIC ULCER
     Route: 048

REACTIONS (4)
  - Lower gastrointestinal haemorrhage [Recovered/Resolved]
  - Enterocolitis [Unknown]
  - Anastomotic stenosis [Unknown]
  - Renal cancer [Unknown]
